FAERS Safety Report 9524459 (Version 1)
Quarter: 2013Q3

REPORT INFORMATION
  Report Type: Spontaneous
  Country: US (occurrence: None)
  Receive Date: 20130912
  Receipt Date: 20130912
  Transmission Date: 20140515
  Serious: No
  Sender: FDA-Public Use
  Company Number: None

PATIENT
  Age: 31 None
  Sex: Male

DRUGS (4)
  1. METOPROLOL TARTRATE [Suspect]
     Indication: HYPERTENSION
     Route: 048
     Dates: start: 20130615
  2. METOPROLOL TARTRATE [Suspect]
     Indication: HEART RATE IRREGULAR
     Route: 048
     Dates: start: 20130615
  3. METOPROLOL TARTRATE [Concomitant]
  4. ADVIL PM [Concomitant]

REACTIONS (4)
  - Hypoaesthesia [None]
  - Hypoaesthesia [None]
  - Musculoskeletal pain [None]
  - Activities of daily living impaired [None]
